FAERS Safety Report 5244988-8 (Version None)
Quarter: 2007Q1

REPORT INFORMATION
  Report Type: 
  Country: None (occurrence: None)
  Receive Date: 20070221
  Receipt Date: 20070221
  Transmission Date: 20070707
  Serious: Yes (Hospitalization, Other)
  Sender: FDA-Public Use
  Company Number: None

PATIENT
  Age: 46 Year
  Sex: Female
  Weight: 63.5036 kg

DRUGS (9)
  1. RIBAVIRIN [Suspect]
     Indication: HEPATITIS C
     Dosage: WEEKLY SUBCU
     Route: 058
     Dates: start: 20050801, end: 20060201
  2. INTERFERON [Suspect]
     Indication: HEPATITIS C
     Dosage: WEEKLY SUBCU
     Route: 058
     Dates: start: 20050801, end: 20060201
  3. BENECAR [Concomitant]
  4. ATIVAN [Concomitant]
  5. TOPROL-XL [Concomitant]
  6. NORVASC [Concomitant]
  7. LEXAPRO [Concomitant]
  8. CLONIDINE [Concomitant]
  9. KLONOPIN [Concomitant]

REACTIONS (17)
  - AGGRESSION [None]
  - ANXIETY [None]
  - BLINDNESS [None]
  - BLISTER [None]
  - DEPRESSION [None]
  - GASTROINTESTINAL DISORDER [None]
  - HYPERTENSION [None]
  - HYPERVENTILATION [None]
  - IRRITABLE BOWEL SYNDROME [None]
  - LUNG DISORDER [None]
  - LYMPHADENOPATHY [None]
  - PANCREATITIS [None]
  - PNEUMONIA [None]
  - PRURITUS [None]
  - SEPTIC SHOCK [None]
  - TACHYCARDIA [None]
  - WEIGHT INCREASED [None]
